FAERS Safety Report 25325191 (Version 1)
Quarter: 2025Q2

REPORT INFORMATION
  Report Type: Spontaneous
  Country: SE (occurrence: SE)
  Receive Date: 20250516
  Receipt Date: 20250516
  Transmission Date: 20250716
  Serious: Yes (Other)
  Sender: TEVA
  Company Number: SE-TEVA-VS-3331054

PATIENT
  Age: 59 Year
  Sex: Female

DRUGS (1)
  1. EPIRUBICIN [Suspect]
     Active Substance: EPIRUBICIN
     Indication: Breast neoplasm
     Route: 065
     Dates: end: 20250226

REACTIONS (3)
  - Pulmonary oedema [Unknown]
  - Cough [Unknown]
  - Cardiac failure [Unknown]

NARRATIVE: CASE EVENT DATE: 20250101
